FAERS Safety Report 5277748-2 (Version None)
Quarter: 2007Q1

REPORT INFORMATION
  Report Type: 
  Country: None (occurrence: None)
  Receive Date: 20070321
  Receipt Date: 20070309
  Transmission Date: 20070707
  Serious: Yes (Hospitalization)
  Sender: FDA-Public Use
  Company Number: 805#1#2007-00003

PATIENT
  Age: 65 Year
  Sex: Female

DRUGS (2)
  1. ALPROSTADIL [Suspect]
     Indication: ARTERIOSCLEROSIS OBLITERANS
     Dosage: 60 MCG INTRAVENOUS DRIP
     Route: 041
     Dates: start: 20070214, end: 20070218
  2. PLETAL [Concomitant]

REACTIONS (1)
  - PLEURAL EFFUSION [None]
